FAERS Safety Report 9248021 (Version 1)
Quarter: 2013Q1

REPORT INFORMATION
  Report Type: Spontaneous
  Country: US (occurrence: None)
  Receive Date: 20130305
  Receipt Date: 20130305
  Transmission Date: 20140127
  Serious: Yes (Other)
  Sender: FDA-Public Use
  Company Number: 163-21880-12053070

PATIENT
  Age: 65 Year
  Sex: Female
  Weight: 68.04 kg

DRUGS (7)
  1. REVLIMID [Suspect]
     Indication: PLASMA CELL MYELOMA
     Route: 048
     Dates: start: 200902
  2. VELCADE [Suspect]
     Indication: PRODUCT USED FOR UNKNOWN INDICATION
  3. ALLOPURINOL [Concomitant]
  4. ASA (ACETYLSALICYLIC ACID) [Concomitant]
  5. GABAPENTIN (GABAPENTIN) [Concomitant]
  6. OXYCODONE (OXYCODONE) [Concomitant]
  7. NYSTATIN (NYSTATIN) [Concomitant]

REACTIONS (1)
  - Full blood count decreased [None]
